FAERS Safety Report 10882599 (Version 3)
Quarter: 2015Q2

REPORT INFORMATION
  Report Type: Report from Study
  Country: CA (occurrence: CA)
  Receive Date: 20150303
  Receipt Date: 20150415
  Transmission Date: 20150821
  Serious: Yes (Hospitalization, Other)
  Sender: FDA-Public Use
  Company Number: CA-ABBVIE-15P-028-1353543-00

PATIENT
  Sex: Male
  Weight: 108.05 kg

DRUGS (1)
  1. LUPRON DEPOT [Suspect]
     Active Substance: LEUPROLIDE ACETATE
     Indication: PROSTATE CANCER
     Route: 030
     Dates: start: 20141020, end: 20141020

REACTIONS (4)
  - Renal disorder [Unknown]
  - Cardiac disorder [Not Recovered/Not Resolved]
  - Cardiac valve disease [Unknown]
  - Terminal state [Unknown]
